FAERS Safety Report 7784919-X (Version None)
Quarter: 2011Q3

REPORT INFORMATION
  Report Type: 
  Country: None (occurrence: None)
  Receive Date: 20110928
  Receipt Date: 20110923
  Transmission Date: 20111222
  Serious: Yes (Death, Hospitalization, Other)
  Sender: FDA-Public Use
  Company Number: US-MERCK-1109USA02720

PATIENT
  Age: 90 Year
  Sex: Male

DRUGS (4)
  1. CARVEDILOL [Concomitant]
     Indication: HYPERTENSION
     Route: 065
  2. KETOCONAZOLE [Concomitant]
     Indication: PROSTATE CANCER
     Route: 065
  3. DOXAZOSIN MESYLATE [Suspect]
     Indication: BLADDER DISORDER
     Route: 065
  4. HYDROCORTONE [Suspect]
     Indication: PROSTATE CANCER
     Route: 048

REACTIONS (17)
  - BLOOD CREATINE INCREASED [None]
  - DEHYDRATION [None]
  - SEPSIS [None]
  - DYSPNOEA [None]
  - ORTHOSTATIC HYPERTENSION [None]
  - RENAL FAILURE [None]
  - URINARY TRACT INFECTION [None]
  - ADVERSE EVENT [None]
  - HAEMATOCRIT DECREASED [None]
  - DEATH [None]
  - BLOOD GLUCOSE INCREASED [None]
  - INCORRECT DOSE ADMINISTERED [None]
  - GAIT DISTURBANCE [None]
  - ASTHENIA [None]
  - HYPOXIA [None]
  - PLEURAL EFFUSION [None]
  - HYDRONEPHROSIS [None]
